FAERS Safety Report 6059468-X (Version None)
Quarter: 2009Q1

REPORT INFORMATION
  Report Type: 
  Country: None (occurrence: None)
  Receive Date: 20090128
  Receipt Date: 20090127
  Transmission Date: 20090719
  Serious: Yes (Other)
  Sender: FDA-Public Use
  Company Number: 2009SP001821

PATIENT
  Age: 10 Year
  Sex: Male

DRUGS (3)
  1. DESLORATADINE [Suspect]
     Indication: ASTHMA
     Dosage: 2.5 MG;QD;PO
     Route: 048
     Dates: start: 20090124
  2. SERETIDE [Concomitant]
  3. NASONEX [Concomitant]

REACTIONS (1)
  - ANGIOEDEMA [None]
